FAERS Safety Report 11446221 (Version 1)
Quarter: 2015Q3

REPORT INFORMATION
  Report Type: Spontaneous
  Country: US (occurrence: US)
  Receive Date: 20150902
  Receipt Date: 20150902
  Transmission Date: 20151125
  Serious: No
  Sender: FDA-Public Use
  Company Number: ALCN2014US005691

PATIENT
  Age: 32 Year
  Sex: Male

DRUGS (1)
  1. PREDNISOLONE ACETATE. [Suspect]
     Active Substance: PREDNISOLONE ACETATE
     Indication: GIANT PAPILLARY CONJUNCTIVITIS
     Dosage: UNK
     Route: 047
     Dates: start: 20141007, end: 20141009

REACTIONS (2)
  - Vision blurred [Not Recovered/Not Resolved]
  - Medication residue present [Not Recovered/Not Resolved]

NARRATIVE: CASE EVENT DATE: 20141007
